FAERS Safety Report 11997577 (Version 1)
Quarter: 2016Q1

REPORT INFORMATION
  Report Type: Spontaneous
  Country: US (occurrence: None)
  Receive Date: 20160202
  Receipt Date: 20160202
  Transmission Date: 20160526
  Serious: Yes (Hospitalization)
  Sender: FDA-Public Use
  Company Number: None

PATIENT
  Age: 64 Year
  Sex: Male
  Weight: 103.06 kg

DRUGS (1)
  1. HARVONI [Suspect]
     Active Substance: LEDIPASVIR\SOFOSBUVIR
     Indication: CHRONIC HEPATITIS C
     Dosage: 90MG/400MG QD ORAL
     Route: 048
     Dates: start: 20150305, end: 20150820

REACTIONS (5)
  - Dizziness [None]
  - Syncope [None]
  - Nausea [None]
  - Melaena [None]
  - Anaemia [None]

NARRATIVE: CASE EVENT DATE: 20150619
